FAERS Safety Report 6780131-1 (Version None)
Quarter: 2010Q2

REPORT INFORMATION
  Report Type: 
  Country: None (occurrence: None)
  Receive Date: 20100618
  Receipt Date: 20100603
  Transmission Date: 20101027
  Serious: No
  Sender: FDA-Public Use
  Company Number: US-TEVA-235697USA

PATIENT
  Age: 80 Year
  Sex: Female

DRUGS (2)
  1. SALBUTAMOL SULFATE INHALATION, 0.09 MG [Suspect]
     Indication: CHRONIC OBSTRUCTIVE PULMONARY DISEASE
     Route: 055
     Dates: start: 20070101
  2. PLAVIX [Concomitant]

REACTIONS (3)
  - COUGH [None]
  - GINGIVAL BLEEDING [None]
  - OROPHARYNGEAL PAIN [None]
